FAERS Safety Report 25212306 (Version 1)
Quarter: 2025Q2

REPORT INFORMATION
  Report Type: Spontaneous
  Country: EC (occurrence: EC)
  Receive Date: 20250418
  Receipt Date: 20250418
  Transmission Date: 20250717
  Serious: Yes (Other)
  Sender: ORGANON
  Company Number: EC-ORGANON-O2504ECU001396

PATIENT
  Sex: Female

DRUGS (1)
  1. ETONOGESTREL [Suspect]
     Active Substance: ETONOGESTREL
     Route: 059
     Dates: start: 20241120

REACTIONS (3)
  - Pregnancy with implant contraceptive [Recovered/Resolved]
  - Unintended pregnancy [Recovered/Resolved]
  - Anembryonic gestation [Unknown]

NARRATIVE: CASE EVENT DATE: 20250101
